FAERS Safety Report 4286198-7 (Version None)
Quarter: 2004Q1

REPORT INFORMATION
  Report Type: 
  Country: None (occurrence: None)
  Receive Date: 20040115
  Receipt Date: 20031010
  Transmission Date: 20041129
  Serious: Yes (Other)
  Sender: FDA-Public Use
  Company Number: 2003181053US

PATIENT
  Age: 65 Year
  Sex: Female
  Weight: 72.6 kg

DRUGS (2)
  1. ROGAINE [Suspect]
     Dosage: UNK, QD, TOPICAL
     Route: 061
     Dates: start: 19900101
  2. VERAPAMIL [Concomitant]

REACTIONS (5)
  - BLOOD PRESSURE INCREASED [None]
  - HYPERTRICHOSIS [None]
  - OEDEMA [None]
  - SYNCOPE [None]
  - TACHYCARDIA [None]
